FAERS Safety Report 5970825-X (Version None)
Quarter: 2008Q4

REPORT INFORMATION
  Report Type: 
  Country: None (occurrence: None)
  Receive Date: 20081127
  Receipt Date: 20081117
  Transmission Date: 20090506
  Serious: Yes (Hospitalization)
  Sender: FDA-Public Use
  Company Number: GB-RANBAXY-2008RR-19385

PATIENT
  Age: 35 Year

DRUGS (1)
  1. PARACETAMOL [Suspect]
     Route: 048

REACTIONS (2)
  - HEPATIC NECROSIS [None]
  - OVERDOSE [None]
